FAERS Safety Report 9238736 (Version 1)
Quarter: 2013Q2

REPORT INFORMATION
  Report Type: Spontaneous
  Country: US (occurrence: None)
  Receive Date: 20130417
  Receipt Date: 20130417
  Transmission Date: 20140414
  Serious: Yes (Other)
  Sender: FDA-Public Use
  Company Number: None

PATIENT
  Age: 78 Year
  Sex: Male
  Weight: 80.29 kg

DRUGS (1)
  1. AQUACEL AG [Suspect]

REACTIONS (3)
  - Pruritus [None]
  - Erythema [None]
  - Skin irritation [None]
